FAERS Safety Report 7232875-5 (Version None)
Quarter: 2011Q1

REPORT INFORMATION
  Report Type: 
  Country: None (occurrence: None)
  Receive Date: 20110119
  Receipt Date: 20110106
  Transmission Date: 20110831
  Serious: Yes (Other)
  Sender: FDA-Public Use
  Company Number: PHHY2011CA01369

PATIENT
  Sex: Female

DRUGS (7)
  1. ACLASTA [Suspect]
     Indication: OSTEOPOROSIS
     Dosage: 5 MG/ 100 ML
     Dates: start: 20080909
  2. ACLASTA [Suspect]
     Dosage: 5 MG/ 100 ML
     Dates: start: 20091104
  3. PLAQUENIL [Concomitant]
  4. VITAMIN D [Concomitant]
  5. ACLASTA [Suspect]
     Dosage: 5 MG/ 100 ML
     Dates: start: 20110106
  6. CINEMET [Concomitant]
  7. CALCIUM [Concomitant]

REACTIONS (2)
  - BLOOD PRESSURE DECREASED [None]
  - CHEST DISCOMFORT [None]
